FAERS Safety Report 24017386 (Version 2)
Quarter: 2025Q1

REPORT INFORMATION
  Report Type: Report from Study
  Country: US (occurrence: US)
  Receive Date: 20240627
  Receipt Date: 20250214
  Transmission Date: 20250409
  Serious: Yes (Other)
  Sender: TAKEDA
  Company Number: US-TAKEDA-2022TUS064470

PATIENT
  Age: 36 Year
  Sex: Male

DRUGS (2)
  1. HEMOFIL [Suspect]
     Active Substance: ANTIHEMOPHILIC FACTOR HUMAN
     Indication: Haemorrhage
  2. HEMOFIL [Suspect]
     Active Substance: ANTIHEMOPHILIC FACTOR HUMAN
     Dosage: 2500 INTERNATIONAL UNIT, 3/WEEK

REACTIONS (5)
  - Haemorrhage [Recovered/Resolved]
  - Limb injury [Unknown]
  - Product dose omission issue [Unknown]
  - Product availability issue [Unknown]
  - Skin laceration [Unknown]

NARRATIVE: CASE EVENT DATE: 20240601
